FAERS Safety Report 7657107-5 (Version None)
Quarter: 2011Q3

REPORT INFORMATION
  Report Type: 
  Country: None (occurrence: None)
  Receive Date: 20110804
  Receipt Date: 20101216
  Transmission Date: 20111222
  Serious: No
  Sender: FDA-Public Use
  Company Number: US-GLAXOSMITHKLINE-A0900171A

PATIENT
  Age: 87 Year
  Sex: Female

DRUGS (10)
  1. IMDUR [Concomitant]
  2. PRILOSEC [Concomitant]
  3. ASPIRIN [Concomitant]
  4. ADVAIR DISKUS 100/50 [Suspect]
     Indication: CHRONIC OBSTRUCTIVE PULMONARY DISEASE
     Dosage: 1PUFF TWICE PER DAY
     Route: 055
     Dates: start: 20060101
  5. CELEXA [Concomitant]
  6. TOPROL-XL [Concomitant]
  7. OXYGEN [Concomitant]
  8. BUSPAR [Concomitant]
  9. TRAZODONE HYDROCHLORIDE [Concomitant]
  10. IBUPROFEN [Concomitant]

REACTIONS (2)
  - CANDIDIASIS [None]
  - CHEST PAIN [None]
